FAERS Safety Report 13850519 (Version 1)
Quarter: 2017Q3

REPORT INFORMATION
  Report Type: Report from Study
  Country: DE (occurrence: DE)
  Receive Date: 20170810
  Receipt Date: 20170810
  Transmission Date: 20171127
  Serious: Yes (Hospitalization)
  Sender: FDA-Public Use
  Company Number: DE-ROCHE-1974947

PATIENT
  Age: 78 Year
  Sex: Female

DRUGS (2)
  1. RITUXIMAB. [Suspect]
     Active Substance: RITUXIMAB
     Route: 065
  2. RITUXIMAB. [Suspect]
     Active Substance: RITUXIMAB
     Indication: RHEUMATOID ARTHRITIS
     Route: 065
     Dates: end: 20161111

REACTIONS (7)
  - Femoral neck fracture [Recovered/Resolved]
  - Enterocolitis haemorrhagic [Unknown]
  - Haematochezia [Unknown]
  - Fall [Unknown]
  - Diverticulitis [Recovered/Resolved]
  - Thoracic vertebral fracture [Recovered/Resolved]
  - Oesophageal candidiasis [Unknown]

NARRATIVE: CASE EVENT DATE: 20170105
